FAERS Safety Report 21625330 (Version 1)
Quarter: 2022Q4

REPORT INFORMATION
  Report Type: Spontaneous
  Country: MK (occurrence: MK)
  Receive Date: 20221122
  Receipt Date: 20221122
  Transmission Date: 20230113
  Serious: Yes (Other)
  Sender: FDA-Public Use
  Company Number: MK-SUN PHARMACEUTICAL INDUSTRIES LTD-2022RR-364977

PATIENT
  Age: 28 Year
  Sex: Female

DRUGS (4)
  1. NIFEDIPINE [Suspect]
     Active Substance: NIFEDIPINE
     Indication: Hypertension
     Dosage: 20 MILLIGRAM, DAILY
     Route: 065
  2. ATENOLOL [Suspect]
     Active Substance: ATENOLOL
     Indication: Porphyria acute
     Dosage: 100 MILLIGRAM, DAILY
     Route: 065
  3. METHYLDOPA [Interacting]
     Active Substance: METHYLDOPA
     Indication: Hypertension
     Dosage: 500 MILLIGRAM, DAILY
     Route: 065
  4. DOXAZOSIN [Suspect]
     Active Substance: DOXAZOSIN MESYLATE
     Indication: Porphyria acute
     Dosage: 1, 5 MG/DAY
     Route: 065

REACTIONS (2)
  - Drug ineffective [Unknown]
  - Abortion induced [Unknown]
